FAERS Safety Report 9224359 (Version 2)
Quarter: 2013Q2

REPORT INFORMATION
  Report Type: Report from Study
  Country: CA (occurrence: CA)
  Receive Date: 20130411
  Receipt Date: 20130520
  Transmission Date: 20140414
  Serious: Yes (Disabling, Other)
  Sender: FDA-Public Use
  Company Number: PHHY2013CA034947

PATIENT
  Age: 57 Year
  Sex: Female

DRUGS (8)
  1. ACLASTA [Suspect]
     Indication: OSTEOPOROSIS
     Dosage: 5 MG, PER 100 ML
     Route: 042
     Dates: start: 20090608
  2. ACLASTA [Suspect]
     Dosage: 5 MG, PER 100 ML
     Route: 042
     Dates: start: 20090620
  3. ACLASTA [Suspect]
     Dosage: UNK
     Route: 042
     Dates: start: 20100609
  4. ACLASTA [Suspect]
     Dosage: UNK
     Route: 042
     Dates: start: 20110614
  5. ACLASTA [Suspect]
     Dosage: UNK
     Route: 042
     Dates: start: 20120524
  6. CRESTOR [Concomitant]
     Dosage: 5 MG, ONCE DAILY
  7. NORVASC [Concomitant]
     Dosage: 5 MG, ONCE DAILY
  8. HYDRAZIDE [Concomitant]
     Dosage: 25 MG, ONCE DAILY

REACTIONS (13)
  - Lacrimation increased [Recovered/Resolved]
  - Diplopia [Recovered/Resolved]
  - Photosensitivity reaction [Recovered/Resolved]
  - Eye irritation [Recovered/Resolved]
  - Eye pruritus [Recovered/Resolved]
  - Eye pain [Recovered/Resolved]
  - Myalgia [Not Recovered/Not Resolved]
  - Pain [Not Recovered/Not Resolved]
  - Road traffic accident [Unknown]
  - Joint dislocation [Unknown]
  - Joint injury [Unknown]
  - Gait disturbance [Unknown]
  - Inappropriate schedule of drug administration [Unknown]
